FAERS Safety Report 24829039 (Version 1)
Quarter: 2025Q1

REPORT INFORMATION
  Report Type: Spontaneous
  Country: DE (occurrence: DE)
  Receive Date: 20250110
  Receipt Date: 20250110
  Transmission Date: 20250409
  Serious: Yes (Life-Threatening, Other)
  Sender: PAREXEL
  Company Number: DE-STEMLINE THERAPEUTICS B.V.-2025-STML-DE000028

PATIENT

DRUGS (2)
  1. TAGRAXOFUSP [Suspect]
     Active Substance: TAGRAXOFUSP
     Indication: Blastic plasmacytoid dendritic cell neoplasia
     Route: 065
  2. TAGRAXOFUSP [Suspect]
     Active Substance: TAGRAXOFUSP
     Route: 065

REACTIONS (3)
  - Tumour lysis syndrome [Recovered/Resolved]
  - Capillary leak syndrome [Recovered/Resolved]
  - Transaminases increased [Recovered/Resolved]
